FAERS Safety Report 4928302-0 (Version None)
Quarter: 2006Q1

REPORT INFORMATION
  Report Type: 
  Country: None (occurrence: None)
  Receive Date: 20060228
  Receipt Date: 20051019
  Transmission Date: 20060701
  Serious: Yes (Hospitalization, Disabling, Other)
  Sender: FDA-Public Use
  Company Number: US-MERCK-0510USA08015

PATIENT
  Age: 42 Year
  Sex: Female
  Weight: 62 kg

DRUGS (7)
  1. VIOXX [Suspect]
     Indication: ARTHRALGIA
     Route: 048
     Dates: start: 19990101, end: 20040930
  2. VIOXX [Suspect]
     Indication: ARTHRITIS
     Route: 048
     Dates: start: 19990101, end: 20040930
  3. VIOXX [Suspect]
     Route: 048
     Dates: start: 19990101, end: 20040930
  4. VIOXX [Suspect]
     Route: 048
     Dates: start: 19990101, end: 20040930
  5. VICODIN [Concomitant]
     Route: 065
  6. VITAMINS (UNSPECIFIED) [Concomitant]
     Route: 065
  7. NICOTINE [Concomitant]
     Route: 065

REACTIONS (13)
  - ANGINA UNSTABLE [None]
  - ARTHRITIS [None]
  - ARTHROPATHY [None]
  - BLOOD PRESSURE INCREASED [None]
  - CHEST PAIN [None]
  - DYSPEPSIA [None]
  - DYSPHAGIA [None]
  - HERNIA [None]
  - HIP ARTHROPLASTY [None]
  - JOINT DISLOCATION [None]
  - MYOCARDIAL INFARCTION [None]
  - PHLEBITIS SUPERFICIAL [None]
  - STRESS [None]
